FAERS Safety Report 21545286 (Version 2)
Quarter: 2023Q1

REPORT INFORMATION
  Report Type: Report from Study
  Country: US (occurrence: US)
  Receive Date: 20221103
  Receipt Date: 20230208
  Transmission Date: 20230417
  Serious: Yes (Other)
  Sender: FDA-Public Use
  Company Number: US-UCBSA-2022062209

PATIENT
  Age: 68 Year
  Sex: Female

DRUGS (1)
  1. BRIVARACETAM [Suspect]
     Active Substance: BRIVARACETAM
     Indication: Seizure
     Dosage: 100 MILLIGRAM, 2X/DAY (BID)

REACTIONS (4)
  - Seizure [Not Recovered/Not Resolved]
  - Shoulder arthroplasty [Unknown]
  - Memory impairment [Not Recovered/Not Resolved]
  - Physiotherapy [Unknown]

NARRATIVE: CASE EVENT DATE: 20221228
